FAERS Safety Report 22744440 (Version 2)
Quarter: 2024Q2

REPORT INFORMATION
  Report Type: Spontaneous
  Country: CA (occurrence: CA)
  Receive Date: 20230724
  Receipt Date: 20240419
  Transmission Date: 20240716
  Serious: Yes (Hospitalization, Other)
  Sender: FDA-Public Use
  Company Number: CA-HLS-202301753

PATIENT
  Age: 40 Year
  Sex: Male

DRUGS (73)
  1. ABILIFY [Suspect]
     Active Substance: ARIPIPRAZOLE
     Indication: Schizophrenia
     Dosage: AMOUNT: 30 MILLIGRAM?TABLETS DOSAGE FORM
     Route: 048
  2. AMISULPRIDE [Suspect]
     Active Substance: AMISULPRIDE
     Indication: Schizophrenia
     Dosage: AMOUNT: 1200 MILLIGRAM?NOT SPECIFIED DOSAGE FORM
     Route: 065
  3. ARIPIPRAZOLE [Suspect]
     Active Substance: ARIPIPRAZOLE
     Indication: Schizophrenia
     Dosage: AMOUNT: 30 MILLIGRAM?NOT SPECIFIED DOSAGE FORM
     Route: 048
  4. ASENAPINE MALEATE [Suspect]
     Active Substance: ASENAPINE MALEATE
     Indication: Schizophrenia
     Route: 065
  5. CITALOPRAM [Suspect]
     Active Substance: CITALOPRAM\CITALOPRAM HYDROBROMIDE
     Indication: Schizophrenia
     Dosage: AMOUNT: 80 MILLIGRAM?THERAPY DURATION: 1095 DAYS
     Route: 065
  6. CLOMIPRAMINE [Suspect]
     Active Substance: CLOMIPRAMINE
     Indication: Schizophrenia
     Dosage: AMOUNT: 250 MILLIGRAM?THERAPY DURATION: 730 DAYS
     Route: 065
  7. CLOZAPINE [Suspect]
     Active Substance: CLOZAPINE
     Indication: Schizophrenia
     Dosage: AMOUNT: 350 MILLIGRAM?TABLETS DOSAGE FORM?THERAPY DURATION: 5110 DAYS
     Route: 065
  8. FLUOXETINE HYDROCHLORIDE [Suspect]
     Active Substance: FLUOXETINE HYDROCHLORIDE
     Indication: Schizophrenia
     Dosage: AMOUNT: 80 MILLIGRAM?THERAPY DURATION: 730 DAYS
     Route: 065
  9. FLUPENTIXOL [Suspect]
     Active Substance: FLUPENTIXOL
     Indication: Schizophrenia
     Dosage: AMOUNT: 6 MILLIGRAM
     Route: 065
  10. FLUPENTIXOL [Suspect]
     Active Substance: FLUPENTIXOL
     Indication: Product used for unknown indication
     Dosage: AMOUNT: 6 MILLIGRAM
     Route: 065
  11. FLUPENTIXOL [Suspect]
     Active Substance: FLUPENTIXOL
     Indication: Schizophrenia
     Dosage: AMOUNT: 60 MILLIGRAM
     Route: 065
  12. FLUPENTIXOL [Suspect]
     Active Substance: FLUPENTIXOL
     Indication: Product used for unknown indication
     Dosage: AMOUNT: 60 MILLIGRAM
     Route: 065
  13. GABAPENTIN [Suspect]
     Active Substance: GABAPENTIN
     Indication: Schizophrenia
     Dosage: AMOUNT: 1600 MILLIGRAM?NOT SPECIFIED DOSAGE FORM?THERAPY DURATION: 152 DAYS
     Route: 065
  14. GABAPENTIN [Suspect]
     Active Substance: GABAPENTIN
     Indication: Product used for unknown indication
     Dosage: AMOUNT: 1600 MILLIGRAM?NOT SPECIFIED DOSAGE FORM?THERAPY DURATION: 152 DAYS
     Route: 065
  15. GABAPENTIN [Suspect]
     Active Substance: GABAPENTIN
     Indication: Schizophrenia
     Dosage: AMOUNT: 1800 MILLIGRAM
     Route: 065
  16. GABAPENTIN [Suspect]
     Active Substance: GABAPENTIN
     Indication: Product used for unknown indication
     Dosage: AMOUNT: 1800 MILLIGRAM
     Route: 065
  17. GABAPENTIN [Suspect]
     Active Substance: GABAPENTIN
     Indication: Schizophrenia
     Dosage: AMOUNT: 600 MILLIGRAM
     Route: 065
  18. GABAPENTIN [Suspect]
     Active Substance: GABAPENTIN
     Indication: Product used for unknown indication
     Dosage: AMOUNT: 600 MILLIGRAM
     Route: 065
  19. HALOPERIDOL [Suspect]
     Active Substance: HALOPERIDOL
     Indication: Schizophrenia
     Dosage: AMOUNT: 5 MILLIGRAM
     Route: 030
  20. HALOPERIDOL [Suspect]
     Active Substance: HALOPERIDOL
     Indication: Product used for unknown indication
     Dosage: AMOUNT: 5 MILLIGRAM
     Route: 030
  21. HALOPERIDOL [Suspect]
     Active Substance: HALOPERIDOL
     Indication: Schizophrenia
     Dosage: AMOUNT: 6 MILLIGRAM?NOT SPECIFIED DOSAGE FORM
     Route: 030
  22. HALOPERIDOL [Suspect]
     Active Substance: HALOPERIDOL
     Indication: Product used for unknown indication
     Dosage: AMOUNT: 6 MILLIGRAM?NOT SPECIFIED DOSAGE FORM
     Route: 030
  23. HALOPERIDOL DECANOATE [Suspect]
     Active Substance: HALOPERIDOL DECANOATE
     Indication: Schizophrenia
     Dosage: AMOUNT: 5 MILLIGRAM
     Route: 030
  24. HALOPERIDOL DECANOATE [Suspect]
     Active Substance: HALOPERIDOL DECANOATE
     Indication: Product used for unknown indication
     Dosage: AMOUNT: 5 MILLIGRAM
     Route: 030
  25. HALOPERIDOL DECANOATE [Suspect]
     Active Substance: HALOPERIDOL DECANOATE
     Indication: Schizophrenia
     Dosage: AMOUNT: 5 MILLIGRAM?LIQUID INTRAMUSCULAR DOSAGE FORM
     Route: 030
  26. HALOPERIDOL DECANOATE [Suspect]
     Active Substance: HALOPERIDOL DECANOATE
     Indication: Product used for unknown indication
     Dosage: AMOUNT: 5 MILLIGRAM?LIQUID INTRAMUSCULAR DOSAGE FORM
     Route: 030
  27. LITHIUM [Suspect]
     Active Substance: LITHIUM
     Indication: Schizophrenia
     Route: 065
  28. LITHIUM CARBONATE [Suspect]
     Active Substance: LITHIUM CARBONATE
     Indication: Schizophrenia
     Dosage: AMOUNT: 1050 MILLIGRAM
     Route: 065
  29. LITHIUM CARBONATE [Suspect]
     Active Substance: LITHIUM CARBONATE
     Indication: Product used for unknown indication
     Dosage: AMOUNT: 1050 MILLIGRAM
     Route: 065
  30. LITHIUM CARBONATE [Suspect]
     Active Substance: LITHIUM CARBONATE
     Indication: Schizophrenia
     Dosage: AMOUNT: 1800 MILLIGRAM?NOT SPECIFIED DOSAGE FORM?THERAPY DURATION: 183 DAYS
     Route: 065
  31. LITHIUM CARBONATE [Suspect]
     Active Substance: LITHIUM CARBONATE
     Indication: Product used for unknown indication
     Dosage: AMOUNT: 1800 MILLIGRAM?NOT SPECIFIED DOSAGE FORM?THERAPY DURATION: 183 DAYS
     Route: 065
  32. LITHIUM CARBONATE [Suspect]
     Active Substance: LITHIUM CARBONATE
     Indication: Schizophrenia
     Dosage: AMOUNT: 2400 MILLIGRAM
     Route: 065
  33. LITHIUM CARBONATE [Suspect]
     Active Substance: LITHIUM CARBONATE
     Indication: Product used for unknown indication
     Dosage: AMOUNT: 2400 MILLIGRAM
     Route: 065
  34. LOXAPINE SUCCINATE [Suspect]
     Active Substance: LOXAPINE SUCCINATE
     Indication: Schizophrenia
     Dosage: AMOUNT: 200 MILLIGRAM
     Route: 065
  35. LOXAPINE SUCCINATE [Suspect]
     Active Substance: LOXAPINE SUCCINATE
     Indication: Product used for unknown indication
     Dosage: AMOUNT: 200 MILLIGRAM
     Route: 065
  36. LOXAPINE SUCCINATE [Suspect]
     Active Substance: LOXAPINE SUCCINATE
     Indication: Schizophrenia
     Dosage: AMOUNT: 50 MILLIGRAM
     Route: 065
  37. LOXAPINE SUCCINATE [Suspect]
     Active Substance: LOXAPINE SUCCINATE
     Indication: Product used for unknown indication
     Dosage: AMOUNT: 50 MILLIGRAM
     Route: 065
  38. LOXAPINE SUCCINATE [Suspect]
     Active Substance: LOXAPINE SUCCINATE
     Indication: Schizophrenia
     Dosage: AMOUNT: 50 MILLIGRAM?THERAPY DURATION: 122 DAYS
     Route: 048
  39. LOXAPINE SUCCINATE [Suspect]
     Active Substance: LOXAPINE SUCCINATE
     Indication: Product used for unknown indication
     Dosage: AMOUNT: 50 MILLIGRAM?THERAPY DURATION: 122 DAYS
     Route: 048
  40. LOXAPINE SUCCINATE [Suspect]
     Active Substance: LOXAPINE SUCCINATE
     Indication: Schizophrenia
     Dosage: AMOUNT: 75 MILLIGRAM
     Route: 065
  41. LOXAPINE SUCCINATE [Suspect]
     Active Substance: LOXAPINE SUCCINATE
     Indication: Product used for unknown indication
     Dosage: AMOUNT: 75 MILLIGRAM
     Route: 065
  42. OLANZAPINE [Suspect]
     Active Substance: OLANZAPINE
     Indication: Schizophrenia
     Dosage: AMOUNT: 15 MILLIGRAM
     Route: 065
  43. OLANZAPINE [Suspect]
     Active Substance: OLANZAPINE
     Indication: Product used for unknown indication
     Dosage: AMOUNT: 15 MILLIGRAM
     Route: 065
  44. OLANZAPINE [Suspect]
     Active Substance: OLANZAPINE
     Indication: Schizophrenia
     Dosage: AMOUNT: 20 MILLIGRAM
     Route: 065
  45. OLANZAPINE [Suspect]
     Active Substance: OLANZAPINE
     Indication: Product used for unknown indication
     Dosage: AMOUNT: 20 MILLIGRAM
     Route: 065
  46. OLANZAPINE [Suspect]
     Active Substance: OLANZAPINE
     Indication: Schizophrenia
     Dosage: AMOUNT: 40 MILLIGRAM?NOT SPECIFIED DOSAGE FORM?THERAPY DURATION: 1460 DAYS
     Route: 065
  47. OLANZAPINE [Suspect]
     Active Substance: OLANZAPINE
     Indication: Product used for unknown indication
     Dosage: AMOUNT: 40 MILLIGRAM?NOT SPECIFIED DOSAGE FORM?THERAPY DURATION: 1460 DAYS
     Route: 065
  48. OLANZAPINE [Suspect]
     Active Substance: OLANZAPINE
     Indication: Schizophrenia
     Dosage: AMOUNT: 100 MILLIGRAM
     Route: 065
  49. PERPHENAZINE [Suspect]
     Active Substance: PERPHENAZINE
     Indication: Schizophrenia
     Dosage: AMOUNT: 32 MILLIGRAM?NOT SPECIFIED DOSAGE FORM?THERAPY DURATION: 30 DAYS
     Route: 065
  50. PROZAC [Suspect]
     Active Substance: FLUOXETINE HYDROCHLORIDE
     Indication: Schizophrenia
     Dosage: AMOUNT: 80 MILLIGRAM?NOT SPECIFIED DOSAGE FORM
     Route: 065
  51. QUETIAPINE [Suspect]
     Active Substance: QUETIAPINE
     Indication: Schizophrenia
     Dosage: AMOUNT: 600 MILLIGRAM?TABLETS DOSAGE FORM
     Route: 065
  52. QUETIAPINE FUMARATE [Suspect]
     Active Substance: QUETIAPINE FUMARATE
     Indication: Schizophrenia
     Dosage: AMOUNT: 600 MILLIGRAM
     Route: 065
  53. RISPERIDONE [Suspect]
     Active Substance: RISPERIDONE
     Indication: Schizophrenia
     Dosage: AMOUNT: 3 MILLIGRAM
     Route: 065
  54. RISPERIDONE [Suspect]
     Active Substance: RISPERIDONE
     Indication: Product used for unknown indication
     Dosage: AMOUNT: 3 MILLIGRAM
     Route: 065
  55. RISPERIDONE [Suspect]
     Active Substance: RISPERIDONE
     Indication: Schizophrenia
     Dosage: AMOUNT: 4 MILLIGRAM
     Route: 065
  56. RISPERIDONE [Suspect]
     Active Substance: RISPERIDONE
     Indication: Product used for unknown indication
     Dosage: AMOUNT: 4 MILLIGRAM
     Route: 065
  57. RISPERIDONE [Suspect]
     Active Substance: RISPERIDONE
     Indication: Schizophrenia
     Dosage: AMOUNT: 8 MILLIGRAM?NOT SPECIFIED DOSAGE FORM?THERAPY DURATION: 732 DAYS
     Route: 065
  58. RISPERIDONE [Suspect]
     Active Substance: RISPERIDONE
     Indication: Product used for unknown indication
     Dosage: AMOUNT: 8 MILLIGRAM?NOT SPECIFIED DOSAGE FORM?THERAPY DURATION: 732 DAYS
     Route: 065
  59. SAPHRIS [Suspect]
     Active Substance: ASENAPINE MALEATE
     Indication: Schizophrenia
     Dosage: AMOUNT: 100 MILLIGRAM?TABLETS DOSAGE FORM
     Route: 048
  60. VALPROATE SODIUM [Suspect]
     Active Substance: VALPROATE SODIUM
     Indication: Schizophrenia
     Dosage: AMOUNT: 1000 MILLIGRAM
     Route: 065
  61. VALPROATE SODIUM [Suspect]
     Active Substance: VALPROATE SODIUM
     Indication: Product used for unknown indication
     Dosage: AMOUNT: 1000 MILLIGRAM
     Route: 065
  62. VALPROATE SODIUM [Suspect]
     Active Substance: VALPROATE SODIUM
     Indication: Schizophrenia
     Dosage: AMOUNT: 1200 MILLIGRAM
     Route: 065
  63. VALPROATE SODIUM [Suspect]
     Active Substance: VALPROATE SODIUM
     Indication: Product used for unknown indication
     Dosage: AMOUNT: 1200 MILLIGRAM
     Route: 065
  64. VALPROATE SODIUM [Suspect]
     Active Substance: VALPROATE SODIUM
     Indication: Schizophrenia
     Dosage: AMOUNT: 1250 MILLIGRAM
     Route: 065
  65. VALPROATE SODIUM [Suspect]
     Active Substance: VALPROATE SODIUM
     Indication: Product used for unknown indication
     Dosage: AMOUNT: 1250 MILLIGRAM
     Route: 065
  66. THIORIDAZINE [Suspect]
     Active Substance: THIORIDAZINE
     Indication: Schizophrenia
     Dosage: SUSPENSION ORAL DOSAGE FORM
     Route: 048
  67. TRIFLUOPERAZINE [Suspect]
     Active Substance: TRIFLUOPERAZINE HYDROCHLORIDE
     Indication: Schizophrenia
     Dosage: AMOUNT: 5 MILLIGRAM?TABLETS DOSAGE FORM?THERAPY DURATION: 359 DAYS
     Route: 065
  68. TRIFLUOPERAZINE [Suspect]
     Active Substance: TRIFLUOPERAZINE HYDROCHLORIDE
     Indication: Product used for unknown indication
     Dosage: AMOUNT: 5 MILLIGRAM?TABLETS DOSAGE FORM?THERAPY DURATION: 359 DAYS
     Route: 065
  69. TRIFLUOPERAZINE [Suspect]
     Active Substance: TRIFLUOPERAZINE HYDROCHLORIDE
     Indication: Schizophrenia
     Dosage: AMOUNT: 50 MILLIGRAM
     Route: 065
  70. TRIFLUOPERAZINE [Suspect]
     Active Substance: TRIFLUOPERAZINE HYDROCHLORIDE
     Indication: Product used for unknown indication
     Dosage: AMOUNT: 50 MILLIGRAM
     Route: 065
  71. ZIPRASIDONE [Suspect]
     Active Substance: ZIPRASIDONE
     Indication: Schizophrenia
     Dosage: AMOUNT: 100 MILLIGRAM
     Route: 048
  72. ZIPRASIDONE HYDROCHLORIDE [Suspect]
     Active Substance: ZIPRASIDONE HYDROCHLORIDE
     Indication: Schizophrenia
     Dosage: AMOUNT: 100 MILLIGRAM
     Route: 065
  73. ZIPRASIDONE [Suspect]
     Active Substance: ZIPRASIDONE

REACTIONS (21)
  - Akathisia [Unknown]
  - Antipsychotic drug level below therapeutic [Unknown]
  - Disinhibition [Unknown]
  - Drug ineffective [Unknown]
  - Dyslipidaemia [Unknown]
  - Euphoric mood [Unknown]
  - Hypertension [Unknown]
  - Increased appetite [Unknown]
  - Irritability [Unknown]
  - Leukaemia [Unknown]
  - Leukopenia [Unknown]
  - Obesity [Unknown]
  - Obsessive-compulsive disorder [Unknown]
  - Prescribed overdose [Unknown]
  - Product use in unapproved indication [Unknown]
  - Schizoaffective disorder [Unknown]
  - Suicide attempt [Unknown]
  - Therapeutic product effect incomplete [Unknown]
  - Therapeutic product effect variable [Unknown]
  - Toxicity to various agents [Unknown]
  - Weight increased [Unknown]
